FAERS Safety Report 7030385-1 (Version None)
Quarter: 2010Q4

REPORT INFORMATION
  Report Type: 
  Country: None (occurrence: None)
  Receive Date: 20101006
  Receipt Date: 20100930
  Transmission Date: 20110411
  Serious: Yes (Death)
  Sender: FDA-Public Use
  Company Number: US-GENZYME-CLOF-1001154

PATIENT
  Sex: Female
  Weight: 43.6 kg

DRUGS (1)
  1. CLOLAR [Suspect]
     Indication: HAEMATOLOGICAL MALIGNANCY
     Dosage: 68 MG, QDX5
     Route: 042
     Dates: start: 20100527, end: 20100601

REACTIONS (1)
  - DEATH [None]
